FAERS Safety Report 4506028-5 (Version None)
Quarter: 2004Q4

REPORT INFORMATION
  Report Type: 
  Country: None (occurrence: None)
  Receive Date: 20041025
  Receipt Date: 20031210
  Transmission Date: 20050328
  Serious: Yes (Other)
  Sender: FDA-Public Use
  Company Number: US-JNJFOC-20030703833

PATIENT
  Age: 71 Year
  Sex: Female
  Weight: 52.1637 kg

DRUGS (5)
  1. REMICADE [Suspect]
     Indication: DYSPNOEA
     Dosage: INTRAVENOUS
     Route: 042
     Dates: start: 20021201
  2. PREDNISONE [Concomitant]
  3. NORVASC [Concomitant]
  4. CLONIDINE [Concomitant]
  5. HYDROCHLOROTHIAZIDE [Concomitant]

REACTIONS (2)
  - CHEST WALL PAIN [None]
  - PULMONARY OEDEMA [None]
